FAERS Safety Report 13492018 (Version 4)
Quarter: 2018Q1

REPORT INFORMATION
  Report Type: Report from Study
  Country: US (occurrence: US)
  Receive Date: 20170427
  Receipt Date: 20180108
  Transmission Date: 20180508
  Serious: Yes (Other)
  Sender: FDA-Public Use
  Company Number: US-ALEXION PHARMACEUTICALS INC.-A201704264

PATIENT
  Sex: Female

DRUGS (2)
  1. SOLIRIS [Suspect]
     Active Substance: ECULIZUMAB
     Indication: HAEMOLYTIC URAEMIC SYNDROME
     Dosage: UNK
     Route: 042
  2. KEPPRA [Concomitant]
     Active Substance: LEVETIRACETAM
     Indication: PRODUCT USED FOR UNKNOWN INDICATION
     Dosage: UNK
     Route: 065
     Dates: end: 201701

REACTIONS (7)
  - Joint injury [Unknown]
  - Vertigo [Unknown]
  - Nasopharyngitis [Recovering/Resolving]
  - Insomnia [Unknown]
  - Seizure [Unknown]
  - Aphasia [Unknown]
  - Lethargy [Unknown]

NARRATIVE: CASE EVENT DATE: 20170318
